FAERS Safety Report 8934536 (Version 1)
Quarter: 2012Q4

REPORT INFORMATION
  Report Type: 
  Country: US (occurrence: US)
  Receive Date: 20121129
  Receipt Date: 20121129
  Transmission Date: 20130627
  Serious: No
  Sender: FDA-Public Use
  Company Number: US-GLAXOSMITHKLINE-A0986563A

PATIENT
  Age: 63 Year
  Sex: Female

DRUGS (2)
  1. FLOVENT [Suspect]
     Indication: COUGH
     Dosage: 1PUFF Variable dose
     Route: 055
     Dates: start: 2011
  2. MULTIPLE MEDICATIONS [Concomitant]

REACTIONS (1)
  - Prescribed overdose [Unknown]
